FAERS Safety Report 8523971 (Version 23)
Quarter: 2015Q3

REPORT INFORMATION
  Report Type: Report from Study
  Country: GB (occurrence: GB)
  Receive Date: 20120420
  Receipt Date: 20150728
  Transmission Date: 20151125
  Serious: Yes (Life-Threatening, Hospitalization, Disabling, Other)
  Sender: FDA-Public Use
  Company Number: GB-ROCHE-1060104

PATIENT
  Age: 72 Year
  Sex: Male
  Weight: 88.4 kg

DRUGS (15)
  1. VEMURAFENIB [Suspect]
     Active Substance: VEMURAFENIB
     Indication: METASTATIC MALIGNANT MELANOMA
     Dosage: DATE OF LAST DOSE PRIOR TO THE SAE : 06/JUN/2012 13/JUN/2012
     Route: 048
     Dates: start: 20120214, end: 20150613
  2. CLEXANE [Suspect]
     Active Substance: ENOXAPARIN SODIUM
     Indication: PULMONARY EMBOLISM
     Dosage: MOST RECENT DOSE PRIOR TO THE EVENT WAS RECEIVED ON 12/OCT/2012
     Route: 065
     Dates: start: 20120413
  3. OMEPRAZOLE. [Concomitant]
     Active Substance: OMEPRAZOLE
     Route: 065
     Dates: start: 20120804
  4. VEMURAFENIB [Suspect]
     Active Substance: VEMURAFENIB
     Dosage: LAST DOSE PRIOR TO SAE ON 20/AUG/2012
     Route: 048
     Dates: start: 20120621, end: 20120821
  5. ASPIRIN. [Concomitant]
     Active Substance: ASPIRIN
     Route: 065
     Dates: start: 20120830, end: 20120910
  6. FELODIPINE. [Concomitant]
     Active Substance: FELODIPINE
     Route: 065
     Dates: start: 2004
  7. PREDNISOLONE. [Concomitant]
     Active Substance: PREDNISOLONE
     Route: 065
     Dates: start: 20120314, end: 20120320
  8. VIAGRA [Concomitant]
     Active Substance: SILDENAFIL CITRATE
     Route: 065
     Dates: start: 201001, end: 20111212
  9. CLEXANE [Suspect]
     Active Substance: ENOXAPARIN SODIUM
     Indication: PULMONARY EMBOLISM
     Route: 065
     Dates: start: 20120413, end: 20121202
  10. BETNOVATE [Concomitant]
     Active Substance: BETAMETHASONE
     Route: 065
     Dates: start: 20120314
  11. MINERAL OIL. [Concomitant]
     Active Substance: MINERAL OIL
     Route: 065
     Dates: start: 20120314
  12. PERINDOPRIL [Concomitant]
     Active Substance: PERINDOPRIL
     Route: 065
     Dates: start: 2004
  13. VEMURAFENIB [Suspect]
     Active Substance: VEMURAFENIB
     Dosage: LAST DOSE PRIOR TO SAE ON 7/JUN/2012 = 960 MG, BID
     Route: 048
     Dates: start: 20120828
  14. SYNALAR [Concomitant]
     Active Substance: FLUOCINOLONE ACETONIDE
     Dates: start: 20120314
  15. LORATADIN [Concomitant]
     Active Substance: LORATADINE
     Route: 065
     Dates: start: 2010, end: 20111201

REACTIONS (4)
  - Cerebral haemorrhage [Recovered/Resolved with Sequelae]
  - Keratoacanthoma [Recovered/Resolved]
  - Pulmonary embolism [Recovered/Resolved]
  - Anal abscess [Recovered/Resolved]

NARRATIVE: CASE EVENT DATE: 20120412
